FAERS Safety Report 15073998 (Version 1)
Quarter: 2018Q2

REPORT INFORMATION
  Report Type: Spontaneous
  Country: CH (occurrence: CH)
  Receive Date: 20180627
  Receipt Date: 20180627
  Transmission Date: 20180711
  Serious: Yes (Other)
  Sender: FDA-Public Use
  Company Number: CH-BAYER-2018-118456

PATIENT
  Sex: Female

DRUGS (2)
  1. COMPLEMENT C1 ESTERASE INHIBITOR [Concomitant]
     Active Substance: CONESTAT ALFA
     Indication: HEREDITARY ANGIOEDEMA
  2. MIRENA [Suspect]
     Active Substance: LEVONORGESTREL
     Dosage: 20 MCG/24HR, CONT
     Route: 015

REACTIONS (3)
  - Pelvic pain [None]
  - Drug ineffective for unapproved indication [None]
  - Endometriosis [None]

NARRATIVE: CASE EVENT DATE: 201805
